FAERS Safety Report 7432550-8 (Version None)
Quarter: 2011Q2

REPORT INFORMATION
  Report Type: 
  Country: None (occurrence: None)
  Receive Date: 20110422
  Receipt Date: 20110418
  Transmission Date: 20111010
  Serious: Yes (Death)
  Sender: FDA-Public Use
  Company Number: US-ELI_LILLY_AND_COMPANY-US201104005120

PATIENT
  Age: 94 Year
  Sex: Female

DRUGS (1)
  1. ZYPREXA [Suspect]
     Indication: HALLUCINATION
     Dosage: 15 MG, UNK
     Dates: end: 20110329

REACTIONS (3)
  - DEATH [None]
  - SOCIAL AVOIDANT BEHAVIOUR [None]
  - DEPRESSED MOOD [None]
